FAERS Safety Report 5750577-9 (Version None)
Quarter: 2008Q2

REPORT INFORMATION
  Report Type: 
  Country: None (occurrence: None)
  Receive Date: 20080528
  Receipt Date: 20080521
  Transmission Date: 20081010
  Serious: Yes (Hospitalization, Other)
  Sender: FDA-Public Use
  Company Number: FR-AVENTIS-200811882FR

PATIENT
  Age: 83 Year
  Sex: Male

DRUGS (3)
  1. BIRODOGYL [Suspect]
     Indication: APHTHOUS STOMATITIS
     Route: 048
     Dates: end: 20080503
  2. BIRODOGYL [Suspect]
     Indication: GINGIVITIS
     Route: 048
     Dates: end: 20080503
  3. VALSARTAN AND HYDROCHLOROTHIAZIDE [Concomitant]

REACTIONS (1)
  - APLASTIC ANAEMIA [None]
